FAERS Safety Report 21615748 (Version 1)
Quarter: 2022Q4

REPORT INFORMATION
  Report Type: Report from Study
  Country: CL (occurrence: CL)
  Receive Date: 20221118
  Receipt Date: 20221118
  Transmission Date: 20230112
  Serious: Yes (Other)
  Sender: FDA-Public Use
  Company Number: CL-002147023-NVSC2022CL256436

PATIENT
  Sex: Female

DRUGS (1)
  1. COSENTYX [Suspect]
     Active Substance: SECUKINUMAB
     Indication: Psoriatic arthropathy
     Dosage: 150 MG, QMO
     Route: 058

REACTIONS (9)
  - Tuberculosis [Unknown]
  - Colitis [Unknown]
  - Illness [Unknown]
  - Gastritis [Unknown]
  - Vomiting [Unknown]
  - Hyperhidrosis [Unknown]
  - Anxiety [Unknown]
  - Nasopharyngitis [Unknown]
  - Pharyngitis [Unknown]
